FAERS Safety Report 14140882 (Version 6)
Quarter: 2018Q4

REPORT INFORMATION
  Report Type: Report from Study
  Country: None (occurrence: CA)
  Receive Date: 20171030
  Receipt Date: 20181203
  Transmission Date: 20190204
  Serious: Yes (Hospitalization, Other)
  Sender: FDA-Public Use
  Company Number: CA-ABBVIE-17K-028-2145636-00

PATIENT
  Sex: Female

DRUGS (2)
  1. HUMIRA [Suspect]
     Active Substance: ADALIMUMAB
     Indication: RHEUMATOID ARTHRITIS
     Route: 058
     Dates: start: 20140130, end: 20171005
  2. HUMIRA [Suspect]
     Active Substance: ADALIMUMAB
     Route: 058
     Dates: start: 20171215

REACTIONS (3)
  - Intervertebral disc disorder [Recovering/Resolving]
  - Arthralgia [Not Recovered/Not Resolved]
  - Spinal osteoarthritis [Recovering/Resolving]

NARRATIVE: CASE EVENT DATE: 2017
